FAERS Safety Report 9922756 (Version 1)
Quarter: 2014Q1

REPORT INFORMATION
  Report Type: Spontaneous
  Country: IT (occurrence: IT)
  Receive Date: 20140225
  Receipt Date: 20140225
  Transmission Date: 20141002
  Serious: Yes (Other)
  Sender: FDA-Public Use
  Company Number: IT-ACTAVIS-2014-03069

PATIENT
  Age: 60 Year
  Sex: Male
  Weight: 80 kg

DRUGS (1)
  1. PACLITAXEL (UNKNOWN) [Suspect]
     Indication: KAPOSI^S SARCOMA
     Dosage: 100 MG, CYCLICAL
     Route: 042
     Dates: start: 20131024, end: 20140205

REACTIONS (2)
  - Nausea [Recovered/Resolved]
  - Anaemia [Recovered/Resolved]
